FAERS Safety Report 10177466 (Version 2)
Quarter: 2014Q2

REPORT INFORMATION
  Report Type: Spontaneous
  Country: GB (occurrence: GB)
  Receive Date: 20140516
  Receipt Date: 20140625
  Transmission Date: 20141212
  Serious: Yes (Death)
  Sender: FDA-Public Use
  Company Number: PHFR2014GB003494

PATIENT
  Sex: Male

DRUGS (3)
  1. CLOZARIL [Suspect]
     Indication: SCHIZOPHRENIA
     Dosage: 200 MG, BID
     Route: 048
     Dates: start: 20010701
  2. PRIADEL [Concomitant]
     Dosage: 800 MG, QD
  3. VENLAFAXINE [Concomitant]
     Dosage: 225 MG, QD

REACTIONS (3)
  - Completed suicide [Fatal]
  - Intentional self-injury [Fatal]
  - Haemorrhage [Fatal]
